FAERS Safety Report 11190416 (Version 1)
Quarter: 2015Q2

REPORT INFORMATION
  Report Type: Spontaneous
  Country: US (occurrence: US)
  Receive Date: 20150615
  Receipt Date: 20150615
  Transmission Date: 20150821
  Serious: No
  Sender: FDA-Public Use
  Company Number: US-TAKEDA-2015TUS007178

PATIENT
  Sex: Female
  Weight: 48.73 kg

DRUGS (5)
  1. BRINTELLIX [Suspect]
     Active Substance: VORTIOXETINE HYDROBROMIDE
     Dosage: 10 MG, BID
     Route: 048
     Dates: start: 20150609
  2. CELEXA [Concomitant]
     Active Substance: CITALOPRAM HYDROBROMIDE
     Dosage: 10 MG, QD
     Route: 048
     Dates: start: 20130824, end: 20150529
  3. BRINTELLIX [Suspect]
     Active Substance: VORTIOXETINE HYDROBROMIDE
     Indication: PRODUCT USED FOR UNKNOWN INDICATION
     Dosage: 10 MG, QD
     Route: 048
     Dates: start: 20150417, end: 20150522
  4. DEPAKOTE [Concomitant]
     Active Substance: DIVALPROEX SODIUM
     Dosage: 125 MG TO 500 MG. DOSAGE VARIES
     Dates: start: 20141120
  5. VALIUM [Concomitant]
     Active Substance: DIAZEPAM
     Dosage: 5MG - 10 MG, PRN, WEEKLY
     Dates: start: 20141119, end: 20150405

REACTIONS (1)
  - Muscular weakness [Not Recovered/Not Resolved]
